FAERS Safety Report 4564142-2 (Version None)
Quarter: 2005Q1

REPORT INFORMATION
  Report Type: 
  Country: None (occurrence: None)
  Receive Date: 20050126
  Receipt Date: 20050107
  Transmission Date: 20050727
  Serious: Yes (Life-Threatening, Hospitalization)
  Sender: FDA-Public Use
  Company Number: JP_050105585

PATIENT
  Age: 75 Year
  Sex: Male

DRUGS (5)
  1. ZYPREXA [Suspect]
     Indication: DELUSIONAL DISORDER, PERSECUTORY TYPE
     Dosage: 5 MG DAY
     Dates: start: 20041203, end: 20041215
  2. ZYPREXA [Suspect]
     Indication: DEPRESSION
     Dosage: 5 MG DAY
     Dates: start: 20041203, end: 20041215
  3. FLUVOXAMINE MALEATE [Concomitant]
  4. TRAZODONE HCL [Concomitant]
  5. AMOBAN (ZOPICLONE) [Concomitant]

REACTIONS (2)
  - HEPATOTOXICITY [None]
  - PLATELET COUNT DECREASED [None]
